FAERS Safety Report 8484799-3 (Version None)
Quarter: 2012Q3

REPORT INFORMATION
  Report Type: 
  Country: None (occurrence: None)
  Receive Date: 20120703
  Receipt Date: 20120625
  Transmission Date: 20120928
  Serious: Yes (Hospitalization)
  Sender: FDA-Public Use
  Company Number: US-BAYER-2011-036854

PATIENT
  Age: 28 Year
  Sex: Female

DRUGS (12)
  1. CLONIDINE [Concomitant]
  2. METFORMIN HCL [Concomitant]
     Dosage: 500 MG, BID
     Route: 048
  3. FLU VACCINATION [Concomitant]
  4. ACTOS [Concomitant]
     Dosage: 30 MG, DAILY
     Route: 048
     Dates: start: 20090826
  5. INSULIN [Concomitant]
  6. FUROSEMIDE [Concomitant]
     Dosage: 20 MG, DAILY
     Dates: start: 20090826
  7. GLIMEPIRIDE [Concomitant]
     Dosage: 4 MG, UNK
     Dates: start: 20090826
  8. YAZ [Suspect]
     Indication: PRODUCT USED FOR UNKNOWN INDICATION
  9. YASMIN [Suspect]
     Indication: PRODUCT USED FOR UNKNOWN INDICATION
     Dosage: UNK
  10. GLUCOPHAGE [Concomitant]
  11. NIFEDIPINE [Concomitant]
     Dosage: 60 MG, UNK
     Dates: start: 20090803
  12. NIFEDIPINE [Concomitant]
     Dosage: 90 MG, UNK
     Dates: start: 20090826

REACTIONS (3)
  - PULMONARY EMBOLISM [None]
  - PAIN [None]
  - INJURY [None]
